FAERS Safety Report 7439777-X (Version None)
Quarter: 2011Q2

REPORT INFORMATION
  Report Type: 
  Country: None (occurrence: None)
  Receive Date: 20110427
  Receipt Date: 20110407
  Transmission Date: 20111010
  Serious: No
  Sender: FDA-Public Use
  Company Number: US-B.I. PHARMACEUTICALS,INC./RIDGEFIELD-2011-BP-10717BP

PATIENT
  Sex: Male

DRUGS (10)
  1. FLOMAX [Suspect]
     Indication: POLLAKIURIA
  2. PREVACID [Concomitant]
     Indication: REFLUX OESOPHAGITIS
  3. ASPIRIN [Concomitant]
     Dosage: 81 MG
  4. FLOMAX [Suspect]
     Indication: MICTURITION URGENCY
     Dosage: 0.4 MG
     Route: 048
     Dates: start: 20080101, end: 20100101
  5. INSULIN [Concomitant]
     Indication: TYPE 1 DIABETES MELLITUS
  6. LIPITOR [Concomitant]
     Indication: BLOOD CHOLESTEROL INCREASED
  7. LYRICA [Concomitant]
  8. ANDROGEL [Concomitant]
  9. PAXIL [Concomitant]
     Indication: ANXIETY
  10. LISINOPRIL [Concomitant]
     Indication: HYPERTENSION

REACTIONS (5)
  - CATARACT [None]
  - EYE PAIN [None]
  - VISUAL IMPAIRMENT [None]
  - RETINAL DETACHMENT [None]
  - INTRAOCULAR PRESSURE INCREASED [None]
